FAERS Safety Report 8580807-X (Version None)
Quarter: 2012Q3

REPORT INFORMATION
  Report Type: 
  Country: None (occurrence: None)
  Receive Date: 20120809
  Receipt Date: 20120726
  Transmission Date: 20120928
  Serious: Yes (Other)
  Sender: FDA-Public Use
  Company Number: GB-RANBAXY-2012R1-58652

PATIENT
  Age: 27 Year
  Sex: Female
  Weight: 88.6 kg

DRUGS (2)
  1. SERTRALINE HYDROCHLORIDE [Suspect]
     Indication: DEPRESSION
     Dosage: 25 MG, UNK
     Route: 048
     Dates: start: 20120612, end: 20120626
  2. ASPIRIN [Concomitant]
     Indication: PRE-ECLAMPSIA
     Dosage: 75 MG, UNK
     Route: 048
     Dates: start: 20120517

REACTIONS (1)
  - TUNNEL VISION [None]
